FAERS Safety Report 23910173 (Version 1)
Quarter: 2024Q2

REPORT INFORMATION
  Report Type: Spontaneous
  Country: US (occurrence: None)
  Receive Date: 20240524
  Receipt Date: 20240524
  Transmission Date: 20240716
  Serious: No
  Sender: FDA-Public Use
  Company Number: None

PATIENT

DRUGS (2)
  1. ZOLOFT [Suspect]
     Active Substance: SERTRALINE HYDROCHLORIDE
  2. PAXIL [Suspect]
     Active Substance: PAROXETINE HYDROCHLORIDE

REACTIONS (11)
  - Rash [None]
  - Electric shock sensation [None]
  - Burning sensation [None]
  - Fall [None]
  - Pain [None]
  - Atrial fibrillation [None]
  - Facial pain [None]
  - Teething [None]
  - Oral pain [None]
  - Hypoaesthesia [None]
  - Gait disturbance [None]

NARRATIVE: CASE EVENT DATE: 20230427
